FAERS Safety Report 25588824 (Version 1)
Quarter: 2025Q3

REPORT INFORMATION
  Report Type: Spontaneous
  Country: US (occurrence: US)
  Receive Date: 20250722
  Receipt Date: 20250722
  Transmission Date: 20251020
  Serious: Yes (Other)
  Sender: COOPERSURGICAL
  Company Number: US-COOPERSURGICAL, INC.-2025CPS005481

PATIENT
  Age: 46 Year
  Sex: Female
  Weight: 66.667 kg

DRUGS (1)
  1. PARAGARD T 380A [Suspect]
     Active Substance: COPPER
     Route: 015
     Dates: start: 20091008

REACTIONS (10)
  - Polypectomy [Recovered/Resolved]
  - Device breakage [Recovered/Resolved]
  - Foreign body in reproductive tract [Recovered/Resolved]
  - Complication of device removal [Recovered/Resolved]
  - Emotional distress [Unknown]
  - Procedural pain [Recovered/Resolved]
  - Abnormal uterine bleeding [Not Recovered/Not Resolved]
  - Muscle spasms [Not Recovered/Not Resolved]
  - Device use issue [Recovered/Resolved]
  - Off label use [Unknown]

NARRATIVE: CASE EVENT DATE: 20200223
